FAERS Safety Report 11556189 (Version 2)
Quarter: 2015Q3

REPORT INFORMATION
  Report Type: Spontaneous
  Country: US (occurrence: US)
  Receive Date: 20150916
  Receipt Date: 20150916
  Transmission Date: 20151125
  Serious: No
  Sender: FDA-Public Use
  Company Number: US-ELI_LILLY_AND_COMPANY-US200805001252

PATIENT
  Age: 72 Year
  Sex: Female
  Weight: 37.64 kg

DRUGS (5)
  1. CENTRUM [Concomitant]
     Active Substance: VITAMINS
  2. FORTEO [Suspect]
     Active Substance: TERIPARATIDE
     Indication: OSTEOPOROSIS
     Dosage: UNK, UNK
     Dates: start: 20080505, end: 20080512
  3. FORTEO [Suspect]
     Active Substance: TERIPARATIDE
     Dates: start: 20080527, end: 200805
  4. ASPIRIN. [Concomitant]
     Active Substance: ASPIRIN
     Dosage: UNK, DAILY (1/D)
  5. OSCAL [Concomitant]
     Active Substance: CALCIUM CARBONATE

REACTIONS (11)
  - Medication error [Unknown]
  - Malaise [Not Recovered/Not Resolved]
  - Nausea [Recovered/Resolved]
  - Pain in extremity [Not Recovered/Not Resolved]
  - Frustration [Not Recovered/Not Resolved]
  - Decreased appetite [Recovered/Resolved]
  - Accidental overdose [Unknown]
  - Blood calcium increased [Recovered/Resolved]
  - Decreased appetite [Not Recovered/Not Resolved]
  - Constipation [Recovered/Resolved]
  - Erythema [Not Recovered/Not Resolved]

NARRATIVE: CASE EVENT DATE: 200805
